FAERS Safety Report 9788258 (Version 1)
Quarter: 2013Q4

REPORT INFORMATION
  Report Type: Spontaneous
  Country: US (occurrence: US)
  Receive Date: 20131230
  Receipt Date: 20131230
  Transmission Date: 20140711
  Serious: Yes (Other)
  Sender: FDA-Public Use
  Company Number: US-AMGEN-USASP2013090926

PATIENT
  Age: 49 Year
  Sex: Male

DRUGS (3)
  1. ENBREL [Suspect]
     Indication: RHEUMATOID ARTHRITIS
     Dosage: 50 MG, QWK
     Route: 065
     Dates: start: 20130620
  2. ENBREL [Suspect]
     Indication: NEUROPATHY PERIPHERAL
  3. METHOTREXATE [Concomitant]
     Dosage: UNK

REACTIONS (2)
  - Immunosuppression [Not Recovered/Not Resolved]
  - Dental caries [Unknown]
